FAERS Safety Report 7994624-2 (Version None)
Quarter: 2011Q4

REPORT INFORMATION
  Report Type: 
  Country: None (occurrence: None)
  Receive Date: 20111217
  Receipt Date: 20111217
  Transmission Date: 20120403
  Serious: No
  Sender: FDA-Public Use
  Company Number: None

PATIENT
  Sex: Female

DRUGS (1)
  1. AMLODIPINE BESYLATE [Suspect]
     Dosage: TABLET ORAL
     Route: 048

REACTIONS (2)
  - MEDICATION ERROR [None]
  - DRUG DISPENSING ERROR [None]
